FAERS Safety Report 4980933-8 (Version None)
Quarter: 2006Q2

REPORT INFORMATION
  Report Type: 
  Country: None (occurrence: None)
  Receive Date: 20060418
  Receipt Date: 20060401
  Transmission Date: 20061013
  Serious: Yes (Other)
  Sender: FDA-Public Use
  Company Number: US200604001425

PATIENT
  Sex: Male

DRUGS (1)
  1. CYMBALTA [Suspect]
     Dosage: 180 MG

REACTIONS (2)
  - CONVULSION [None]
  - PRESCRIBED OVERDOSE [None]
